FAERS Safety Report 18329934 (Version 2)
Quarter: 2020Q4

REPORT INFORMATION
  Report Type: Spontaneous
  Country: BR (occurrence: BR)
  Receive Date: 20200930
  Receipt Date: 20201005
  Transmission Date: 20210113
  Serious: Yes (Other)
  Sender: FDA-Public Use
  Company Number: BR-TAKEDA-2020TUS040565

PATIENT
  Age: 29 Year
  Sex: Male
  Weight: 92 kg

DRUGS (1)
  1. DEXILANT [Suspect]
     Active Substance: DEXLANSOPRAZOLE
     Indication: OESOPHAGITIS
     Dosage: 60 MILLIGRAM, QD
     Route: 048
     Dates: start: 20200820

REACTIONS (6)
  - Myalgia [Unknown]
  - Gastric disorder [Unknown]
  - Condition aggravated [Unknown]
  - Dizziness [Unknown]
  - Respiratory disorder [Unknown]
  - Somnolence [Unknown]

NARRATIVE: CASE EVENT DATE: 202008
